FAERS Safety Report 7358535-8 (Version None)
Quarter: 2011Q1

REPORT INFORMATION
  Report Type: 
  Country: None (occurrence: None)
  Receive Date: 20110317
  Receipt Date: 20110314
  Transmission Date: 20110831
  Serious: Yes (Hospitalization)
  Sender: FDA-Public Use
  Company Number: FR-ELI_LILLY_AND_COMPANY-FR201012001079

PATIENT
  Sex: Female
  Weight: 49 kg

DRUGS (1)
  1. SOMATROPIN RDNA [Suspect]
     Indication: GROWTH RETARDATION
     Dosage: 0.05 MG/KG, DAILY (1/D)
     Route: 058
     Dates: start: 20070524

REACTIONS (1)
  - SUICIDE ATTEMPT [None]
